FAERS Safety Report 12320885 (Version 5)
Quarter: 2018Q2

REPORT INFORMATION
  Report Type: Spontaneous
  Country: US (occurrence: US)
  Receive Date: 20160429
  Receipt Date: 20180507
  Transmission Date: 20180711
  Serious: No
  Sender: FDA-Public Use
  Company Number: US-ROCHE-1632313

PATIENT
  Sex: Female

DRUGS (10)
  1. OMEPRAZOLE. [Concomitant]
     Active Substance: OMEPRAZOLE
  2. ESBRIET [Suspect]
     Active Substance: PIRFENIDONE
     Indication: IDIOPATHIC PULMONARY FIBROSIS
     Route: 048
     Dates: start: 20150301
  3. ELIQUIS [Concomitant]
     Active Substance: APIXABAN
  4. SIMVASTATIN. [Concomitant]
     Active Substance: SIMVASTATIN
  5. LORATADINE. [Concomitant]
     Active Substance: LORATADINE
  6. METOPROLOL. [Concomitant]
     Active Substance: METOPROLOL
  7. PROPAFENONE. [Concomitant]
     Active Substance: PROPAFENONE
  8. FLUTICASONE. [Concomitant]
     Active Substance: FLUTICASONE
     Route: 045
  9. CALTRATE [Concomitant]
     Active Substance: CALCIUM CARBONATE
  10. VITAMIN D3 [Concomitant]
     Active Substance: CHOLECALCIFEROL

REACTIONS (9)
  - Nausea [Unknown]
  - Rash [Unknown]
  - Photosensitivity reaction [Unknown]
  - Dyspepsia [Unknown]
  - Eye disorder [Unknown]
  - Arthralgia [Unknown]
  - Sinus disorder [Unknown]
  - Drug dose omission [Unknown]
  - Sinusitis [Unknown]
